FAERS Safety Report 15704256 (Version 1)
Quarter: 2018Q4

REPORT INFORMATION
  Report Type: Spontaneous
  Country: US (occurrence: US)
  Receive Date: 20181127
  Receipt Date: 20181127
  Transmission Date: 20190205
  Serious: No
  Sender: FDA-Public Use
  Company Number: None

PATIENT
  Age: 56 Year
  Sex: Female
  Weight: 58.5 kg

DRUGS (7)
  1. ZYRTEC [Concomitant]
     Active Substance: CETIRIZINE HYDROCHLORIDE
  2. AIMOVIG [Suspect]
     Active Substance: ERENUMAB-AOOE
     Indication: MIGRAINE
     Dosage: ?          QUANTITY:1 INJECTION(S);OTHER FREQUENCY:MONTHLY;?
  3. AMBIEN [Concomitant]
     Active Substance: ZOLPIDEM TARTRATE
  4. MELOXICAM. [Concomitant]
     Active Substance: MELOXICAM
  5. RANITIDINE. [Concomitant]
     Active Substance: RANITIDINE
  6. IRON [Concomitant]
     Active Substance: IRON
  7. VITAMIN D [Concomitant]
     Active Substance: CHOLECALCIFEROL

REACTIONS (11)
  - Constipation [None]
  - Neck pain [None]
  - Bruxism [None]
  - Weight increased [None]
  - Anxiety [None]
  - Lack of satiety [None]
  - Musculoskeletal pain [None]
  - Food craving [None]
  - Headache [None]
  - Increased appetite [None]
  - Palpitations [None]

NARRATIVE: CASE EVENT DATE: 20180815
